FAERS Safety Report 9612561 (Version 4)
Quarter: 2014Q2

REPORT INFORMATION
  Report Type: Report from Study
  Country: BR (occurrence: BR)
  Receive Date: 20131010
  Receipt Date: 20140422
  Transmission Date: 20141212
  Serious: Yes (Other)
  Sender: FDA-Public Use
  Company Number: PHHY2013BR111845

PATIENT
  Sex: Female

DRUGS (4)
  1. GILENYA [Suspect]
     Indication: MULTIPLE SCLEROSIS
     Dosage: 1 DF, QD
     Route: 048
  2. BACLOFEN [Concomitant]
     Indication: PAIN
     Dosage: 2 DF, QD
     Route: 048
  3. BACLOFEN [Concomitant]
     Indication: MULTIPLE SCLEROSIS
  4. DIAZEPAM [Concomitant]
     Indication: INSOMNIA
     Dosage: 2 DF, QD
     Route: 048

REACTIONS (8)
  - Glaucoma [Not Recovered/Not Resolved]
  - Haemorrhoids [Unknown]
  - Feeling hot [Unknown]
  - Pain [Unknown]
  - Muscle spasticity [Not Recovered/Not Resolved]
  - Sensory loss [Not Recovered/Not Resolved]
  - Dysstasia [Not Recovered/Not Resolved]
  - Weight increased [Unknown]
